FAERS Safety Report 6569375-1 (Version None)
Quarter: 2010Q1

REPORT INFORMATION
  Report Type: 
  Country: None (occurrence: None)
  Receive Date: 20100204
  Receipt Date: 20100202
  Transmission Date: 20100710
  Serious: Yes (Other)
  Sender: FDA-Public Use
  Company Number: US-BIOGENIDEC-2005BI017098

PATIENT
  Age: 39 Year
  Sex: Female

DRUGS (6)
  1. AVONEX [Suspect]
     Indication: MULTIPLE SCLEROSIS
     Route: 030
  2. AVONEX [Suspect]
     Route: 030
     Dates: end: 20020916
  3. REBIF [Concomitant]
     Indication: MULTIPLE SCLEROSIS
  4. BETASERON [Concomitant]
     Indication: MULTIPLE SCLEROSIS
     Dates: start: 20021001
  5. IMMUNE GLOBULIN NOS [Concomitant]
  6. COPAXONE [Concomitant]

REACTIONS (4)
  - CEREBROVASCULAR ACCIDENT [None]
  - DEPRESSION [None]
  - HYPERTENSION [None]
  - WHITE BLOOD CELL COUNT DECREASED [None]
